FAERS Safety Report 8770492 (Version 2)
Quarter: 2012Q4

REPORT INFORMATION
  Report Type: 
  Country: GB (occurrence: GB)
  Receive Date: 20120906
  Receipt Date: 20120906
  Transmission Date: 20130627
  Serious: Yes (Other)
  Sender: FDA-Public Use
  Company Number: GB-TEVA-352926ISR

PATIENT
  Age: 50 None
  Sex: Female
  Weight: 67.13 kg

DRUGS (9)
  1. TEVA THYROXINE [Suspect]
     Dosage: 350 Microgram Daily;
     Dates: start: 201201, end: 20120326
  2. ALFACALCIDOL [Concomitant]
     Dosage: 500 Nanogram Daily;
  3. ALFACALCIDOL [Concomitant]
     Dosage: 1 Microgram Daily;
  4. FERROUS SULPHATE [Concomitant]
     Dosage: 200 Milligram Daily; at teatime
  5. CALCIUM ACETATE [Concomitant]
     Dosage: 2 Gram Daily;
  6. ESTRADIOL [Concomitant]
     Dosage: 1 Milligram Daily;
  7. AMLODIPINE [Concomitant]
     Dosage: 10 Milligram Daily;
  8. BENDROFLUMETHIAZIDE [Concomitant]
     Dosage: 2.5 Milligram Daily; each morning
  9. SERTRALINE 50MG [Concomitant]
     Dosage: .5 Tablet Daily;

REACTIONS (15)
  - Hyperthyroidism [Recovered/Resolved]
  - Blood thyroid stimulating hormone abnormal [Recovered/Resolved]
  - Thyroxine free abnormal [Not Recovered/Not Resolved]
  - Investigation abnormal [Recovered/Resolved]
  - Fatigue [Recovered/Resolved]
  - Feeling cold [Recovered/Resolved]
  - Paraesthesia [Recovered/Resolved]
  - Malaise [Recovered/Resolved]
  - Palpitations [Not Recovered/Not Resolved]
  - Tremor [Not Recovered/Not Resolved]
  - Sleep disorder [Not Recovered/Not Resolved]
  - Confusional state [Not Recovered/Not Resolved]
  - Feeling of body temperature change [Not Recovered/Not Resolved]
  - Job dissatisfaction [Unknown]
  - Emotional disorder [Unknown]
